FAERS Safety Report 22593623 (Version 1)
Quarter: 2023Q2

REPORT INFORMATION
  Report Type: Spontaneous
  Country: IN (occurrence: IN)
  Receive Date: 20230613
  Receipt Date: 20230613
  Transmission Date: 20230721
  Serious: Yes (Other)
  Sender: FDA-Public Use
  Company Number: IN-PERRIGO-23IN006686

PATIENT
  Age: 54 Year
  Sex: Female

DRUGS (1)
  1. MINOXIDIL [Suspect]
     Active Substance: MINOXIDIL
     Indication: Product used for unknown indication
     Dosage: 10 ML, SINGLE
     Route: 048

REACTIONS (2)
  - Pleural effusion [Recovered/Resolved]
  - Accidental exposure to product [Recovered/Resolved]
